FAERS Safety Report 8596441 (Version 2)
Quarter: 2012Q4

REPORT INFORMATION
  Report Type: 
  Country: US (occurrence: US)
  Receive Date: 20120605
  Receipt Date: 20121129
  Transmission Date: 20130627
  Serious: Yes (Other)
  Sender: FDA-Public Use
  Company Number: US-US-EMD SERONO, INC.-7136165

PATIENT
  Sex: Female

DRUGS (4)
  1. REBIF [Suspect]
     Indication: MULTIPLE SCLEROSIS
     Route: 058
     Dates: start: 201001, end: 201203
  2. REBIF [Suspect]
     Route: 058
     Dates: end: 201205
  3. LORAZEPAM [Concomitant]
     Indication: SLEEP DISORDER
  4. WELLBUTRIN [Concomitant]
     Indication: PRODUCT USED FOR UNKNOWN INDICATION

REACTIONS (3)
  - Autoimmune thyroiditis [Not Recovered/Not Resolved]
  - Vertigo [Recovering/Resolving]
  - Myalgia [Recovered/Resolved]
